FAERS Safety Report 6633958-0 (Version None)
Quarter: 2010Q1

REPORT INFORMATION
  Report Type: 
  Country: None (occurrence: None)
  Receive Date: 20100310
  Receipt Date: 20100303
  Transmission Date: 20100710
  Serious: Yes (Other)
  Sender: FDA-Public Use
  Company Number: 20097870

PATIENT
  Age: 13 Year
  Sex: Male

DRUGS (1)
  1. BACLOFEN [Suspect]
     Indication: MUSCLE SPASTICITY
     Dosage: 86 MCG, DAILY, INTRATHECAL
     Route: 037

REACTIONS (3)
  - COUGH [None]
  - INFREQUENT BOWEL MOVEMENTS [None]
  - SPUTUM RETENTION [None]
